FAERS Safety Report 9575431 (Version 1)
Quarter: 2013Q4

REPORT INFORMATION
  Report Type: Spontaneous
  Country: US (occurrence: US)
  Receive Date: 20131001
  Receipt Date: 20131001
  Transmission Date: 20140711
  Serious: No
  Sender: FDA-Public Use
  Company Number: US-AMGEN-USASP2013002177

PATIENT
  Age: 55 Year
  Sex: Female
  Weight: 59.86 kg

DRUGS (5)
  1. METHOTREXATE [Concomitant]
     Dosage: 2.5 MG, UNK
  2. PREDNISONE [Concomitant]
     Dosage: 5 MG, UNK
  3. FISH OIL [Concomitant]
     Dosage: UNK
  4. FOLIC ACID [Concomitant]
     Dosage: UNK
  5. ENBREL [Suspect]
     Indication: PRODUCT USED FOR UNKNOWN INDICATION
     Dosage: 50 MG, QWK
     Route: 058

REACTIONS (1)
  - Injection site bruising [Unknown]
